FAERS Safety Report 8796894 (Version 1)
Quarter: 2012Q4

REPORT INFORMATION
  Report Type: 
  Country: US (occurrence: US)
  Receive Date: 20120920
  Receipt Date: 20120920
  Transmission Date: 20130627
  Serious: Yes (Hospitalization, Other)
  Sender: FDA-Public Use
  Company Number: US-BRISTOL-MYERS SQUIBB COMPANY-16951121

PATIENT
  Age: 55 Year
  Sex: Female

DRUGS (12)
  1. PRAVACHOL [Suspect]
  2. LIPITOR [Suspect]
     Route: 048
  3. LOVAZA [Suspect]
     Indication: BLOOD TRIGLYCERIDES INCREASED
     Dosage: 1DF = 4 caps
     Route: 048
     Dates: start: 200805
  4. CRESTOR [Suspect]
  5. TRILIPIX [Concomitant]
     Indication: BLOOD TRIGLYCERIDES INCREASED
  6. LISINOPRIL [Concomitant]
  7. ASPIRIN [Concomitant]
  8. METFORMIN [Concomitant]
  9. CALCIUM [Concomitant]
  10. PLAVIX [Concomitant]
  11. METOPROLOL [Concomitant]
  12. IMDUR [Concomitant]

REACTIONS (7)
  - Myocardial infarction [Not Recovered/Not Resolved]
  - Muscle atrophy [Not Recovered/Not Resolved]
  - Low density lipoprotein increased [Not Recovered/Not Resolved]
  - Vitamin D deficiency [Not Recovered/Not Resolved]
  - Pain in extremity [Not Recovered/Not Resolved]
  - Muscle rupture [Not Recovered/Not Resolved]
  - Muscle spasms [Not Recovered/Not Resolved]
